FAERS Safety Report 5758916-X (Version None)
Quarter: 2008Q2

REPORT INFORMATION
  Report Type: 
  Country: None (occurrence: None)
  Receive Date: 20080603
  Receipt Date: 20080603
  Transmission Date: 20081010
  Serious: No
  Sender: FDA-Public Use
  Company Number: None

PATIENT
  Age: 74 Year
  Sex: Male
  Weight: 77.1115 kg

DRUGS (2)
  1. LEVAQUIN [Suspect]
     Indication: PNEUMONIA
     Dosage: 500 MG DAILY IV BOLUS
     Route: 040
     Dates: start: 20070601, end: 20070604
  2. AVELOX [Suspect]
     Indication: PNEUMONIA
     Dosage: 400 MG DAILY PO
     Route: 048
     Dates: start: 20070605, end: 20070612

REACTIONS (2)
  - SCAR [None]
  - TENDONITIS [None]
